FAERS Safety Report 4789729-3 (Version None)
Quarter: 2005Q4

REPORT INFORMATION
  Report Type: 
  Country: None (occurrence: None)
  Receive Date: 20051005
  Receipt Date: 20051005
  Transmission Date: 20060501
  Serious: Yes (Hospitalization, Other)
  Sender: FDA-Public Use
  Company Number: None

PATIENT
  Sex: Female
  Weight: 23.1 kg

DRUGS (4)
  1. CYCLOPHOSPHAMIDE [Suspect]
     Indication: NEUROBLASTOMA
     Dosage: SEE IMAGE
     Dates: start: 20050914, end: 20050915
  2. DOXORUBICIN HYDROCHLORIDE [Suspect]
     Dosage: SEE IMAGE
     Dates: start: 20050914, end: 20050916
  3. MESNA [Suspect]
     Dosage: SEE IMAGE
     Dates: start: 20050914, end: 20050915
  4. VINCRISTINE SULFATE [Suspect]
     Dosage: SEE IMAGE
     Dates: start: 20050914, end: 20050916

REACTIONS (2)
  - HEPATIC ENZYME ABNORMAL [None]
  - HYPONATRAEMIA [None]
